FAERS Safety Report 5376987-X (Version None)
Quarter: 2007Q2

REPORT INFORMATION
  Report Type: 
  Country: None (occurrence: None)
  Receive Date: 20070628
  Receipt Date: 20070628
  Transmission Date: 20071010
  Serious: Yes (Other)
  Sender: FDA-Public Use
  Company Number: None

PATIENT
  Age: 69 Year
  Sex: Female
  Weight: 67.1324 kg

DRUGS (2)
  1. PAMABROM  50 [Suspect]
     Indication: OEDEMA
     Dosage: QD PO
     Route: 048
     Dates: start: 20070623, end: 20070626
  2. DYAZIDE [Suspect]
     Indication: OEDEMA
     Dosage: QD PO
     Route: 048
     Dates: start: 20070626, end: 20070626

REACTIONS (2)
  - OEDEMA PERIPHERAL [None]
  - SELF-MEDICATION [None]
